FAERS Safety Report 17145657 (Version 1)
Quarter: 2019Q4

REPORT INFORMATION
  Report Type: Spontaneous
  Country: SE (occurrence: SE)
  Receive Date: 20191212
  Receipt Date: 20191212
  Transmission Date: 20200122
  Serious: Yes (Hospitalization)
  Sender: FDA-Public Use
  Company Number: SE-SUN PHARMACEUTICAL INDUSTRIES LTD-2019RR-230580

PATIENT
  Age: 41 Year
  Sex: Female

DRUGS (6)
  1. STESOLID [Suspect]
     Active Substance: DIAZEPAM
     Indication: PRODUCT USED FOR UNKNOWN INDICATION
     Dosage: 35 MILLIGRAM, UNK
     Route: 048
     Dates: start: 20190726, end: 20190726
  2. LAMICTAL [Suspect]
     Active Substance: LAMOTRIGINE
     Indication: PRODUCT USED FOR UNKNOWN INDICATION
     Dosage: ^LAMICTAL 3 ST 225MG^ ()
     Route: 048
     Dates: start: 20190726, end: 20190726
  3. LERGIGAN (PROMETHAZINE HYDROCHLORIDE) [Suspect]
     Active Substance: PROMETHAZINE HYDROCHLORIDE
     Indication: PRODUCT USED FOR UNKNOWN INDICATION
     Dosage: 10X50 MG
     Route: 048
     Dates: start: 20190726
  4. PREGABALIN. [Suspect]
     Active Substance: PREGABALIN
     Indication: PRODUCT USED FOR UNKNOWN INDICATION
     Dosage: ^7 ST 225PREGABALIN^ ()
     Route: 048
     Dates: start: 20190726, end: 20190726
  5. OLANZAPINE. [Suspect]
     Active Substance: OLANZAPINE
     Indication: PRODUCT USED FOR UNKNOWN INDICATION
     Dosage: 70 MILLIGRAM, UNK
     Route: 048
     Dates: start: 20190726, end: 20190726
  6. IBUMETIN [Suspect]
     Active Substance: IBUPROFEN
     Indication: PRODUCT USED FOR UNKNOWN INDICATION
     Dosage: ()
     Route: 048
     Dates: start: 20190726, end: 20190726

REACTIONS (5)
  - Intentional self-injury [Unknown]
  - Lethargy [Unknown]
  - Mydriasis [Unknown]
  - Intentional overdose [Unknown]
  - Diplopia [Unknown]

NARRATIVE: CASE EVENT DATE: 20190726
